FAERS Safety Report 12873630 (Version 2)
Quarter: 2016Q4

REPORT INFORMATION
  Report Type: Spontaneous
  Country: AU (occurrence: AU)
  Receive Date: 20161021
  Receipt Date: 20161028
  Transmission Date: 20170207
  Serious: Yes (Other)
  Sender: FDA-Public Use
  Company Number: AU-PFIZER INC-2016491887

PATIENT
  Sex: Male

DRUGS (2)
  1. TRAMADOL HCL [Interacting]
     Active Substance: TRAMADOL HYDROCHLORIDE
     Dosage: UNK
  2. EFFEXOR XR [Suspect]
     Active Substance: VENLAFAXINE HYDROCHLORIDE
     Indication: DEPRESSION
     Dosage: UNK
     Dates: start: 2009

REACTIONS (7)
  - Intentional product misuse [Not Recovered/Not Resolved]
  - Seizure [Not Recovered/Not Resolved]
  - Withdrawal syndrome [Not Recovered/Not Resolved]
  - Serotonin syndrome [Unknown]
  - Paraesthesia [Not Recovered/Not Resolved]
  - Drug interaction [Unknown]
  - Emotional disorder [Not Recovered/Not Resolved]
